FAERS Safety Report 24108338 (Version 3)
Quarter: 2024Q3

REPORT INFORMATION
  Report Type: Spontaneous
  Country: FR (occurrence: FR)
  Receive Date: 20240718
  Receipt Date: 20240924
  Transmission Date: 20241016
  Serious: Yes (Life-Threatening, Hospitalization, Other)
  Sender: JAZZ
  Company Number: FR-JAZZ PHARMACEUTICALS-2024-FR-010594

PATIENT

DRUGS (9)
  1. CANNABIDIOL [Suspect]
     Active Substance: CANNABIDIOL
     Indication: Severe myoclonic epilepsy of infancy
     Dosage: 17.5 MILLIGRAM/KILOGRAM, DAILY
     Route: 048
     Dates: start: 202311
  2. CANNABIDIOL [Suspect]
     Active Substance: CANNABIDIOL
     Dosage: 10 MILLILITER, BID
     Route: 048
     Dates: start: 20240430, end: 20240621
  3. CANNABIDIOL [Suspect]
     Active Substance: CANNABIDIOL
     Dosage: 0.3 MILLILITER, BID
     Route: 048
     Dates: start: 20240628
  4. VALPROATE [Suspect]
     Active Substance: VALPROIC ACID
     Indication: Severe myoclonic epilepsy of infancy
     Dosage: 28 MILLIGRAM/KILOGRAM, QD
     Route: 048
     Dates: start: 2020, end: 20240621
  5. VALPROATE [Suspect]
     Active Substance: VALPROIC ACID
     Dosage: UNK
     Dates: start: 20240625
  6. STIRIPENTOL [Suspect]
     Active Substance: STIRIPENTOL
     Indication: Severe myoclonic epilepsy of infancy
     Dosage: 43 MILLIGRAM/KILOGRAM, QD
     Route: 048
     Dates: start: 202005, end: 20240621
  7. STIRIPENTOL [Suspect]
     Active Substance: STIRIPENTOL
     Dosage: UNK
     Dates: start: 20240625
  8. CLOBAZAM [Suspect]
     Active Substance: CLOBAZAM
     Indication: Severe myoclonic epilepsy of infancy
     Dosage: 0.45 MILLIGRAM/KILOGRAM, QD
     Route: 048
     Dates: start: 202012
  9. CLONAZEPAM [Concomitant]
     Active Substance: CLONAZEPAM
     Indication: Product used for unknown indication

REACTIONS (6)
  - Encephalitis [Recovered/Resolved]
  - Thrombocytopenia [Recovered/Resolved]
  - Hepatitis [Recovered/Resolved]
  - Varicella [Recovered/Resolved]
  - Cell death [Recovered/Resolved]
  - Hepatic cytolysis [Recovered/Resolved]

NARRATIVE: CASE EVENT DATE: 20240620
